FAERS Safety Report 4712182-2 (Version None)
Quarter: 2005Q3

REPORT INFORMATION
  Report Type: 
  Country: None (occurrence: None)
  Receive Date: 20050712
  Receipt Date: 20050630
  Transmission Date: 20060218
  Serious: Yes (Life-Threatening, Hospitalization)
  Sender: FDA-Public Use
  Company Number: BE-BRISTOL-MYERS SQUIBB COMPANY-13028659

PATIENT
  Age: 66 Year
  Sex: Male

DRUGS (4)
  1. CETUXIMAB [Suspect]
     Indication: COLORECTAL CANCER METASTATIC
     Dosage: THE MOST RECENT INFUSION OF CETUXIMAB WAS THE 8TH INFUSION ADMINISTERED ON 08-FEB-2005.
     Route: 041
     Dates: start: 20041221
  2. IRINOTECAN [Suspect]
     Indication: COLORECTAL CANCER METASTATIC
     Dosage: THE MOST RECENT INFUSION OF IRINOTECAN WAS THE 3RD INFUSION ADMINISTERED ON 25-JAN-2005.
     Route: 042
     Dates: start: 20041221
  3. FOLINIC ACID [Suspect]
     Indication: COLORECTAL CANCER METASTATIC
     Dosage: THE MOST RECENT INFUSION OF FOLINIC ACID WAS THE 3RD INFUSION ADMINISTERED ON 25-JAN-2005
     Route: 042
     Dates: start: 20041221
  4. FLUOROURACIL [Suspect]
     Indication: COLORECTAL CANCER METASTATIC
     Dosage: THE MOST RECENT INFUSION OF 5-FU WAS THE 3RD INFUSION ADMINISTERED ON 25-JAN-2005
     Route: 042
     Dates: start: 20041221

REACTIONS (2)
  - CARDIAC FAILURE ACUTE [None]
  - PULMONARY OEDEMA [None]
